FAERS Safety Report 11865917 (Version 2)
Quarter: 2016Q2

REPORT INFORMATION
  Report Type: Spontaneous
  Country: JP (occurrence: JP)
  Receive Date: 20151223
  Receipt Date: 20160506
  Transmission Date: 20160815
  Serious: Yes (Hospitalization, Other)
  Sender: FDA-Public Use
  Company Number: JP-GILEAD-2015-0189567

PATIENT
  Age: 77 Year
  Sex: Female
  Weight: 37 kg

DRUGS (10)
  1. AMBRISENTAN [Suspect]
     Active Substance: AMBRISENTAN
     Indication: PULMONARY HYPERTENSION
     Dosage: 5 MG, UNK
     Route: 048
     Dates: start: 20150624, end: 20150723
  2. BROTIZOLAM [Concomitant]
     Active Substance: BROTIZOLAM
     Indication: PRODUCT USED FOR UNKNOWN INDICATION
     Dosage: 0.25 MG, UNK
  3. CARELOAD LA [Concomitant]
     Active Substance: BERAPROST SODIUM
     Dosage: 120 ?G, UNK
     Dates: start: 20150608
  4. VIDAZA [Concomitant]
     Active Substance: AZACITIDINE
     Indication: CHRONIC MYELOMONOCYTIC LEUKAEMIA
     Dosage: UNK
     Dates: start: 201412
  5. WARFARIN POTASSIUM [Concomitant]
     Active Substance: WARFARIN POTASSIUM
     Dosage: 3 MG, UNK
  6. LANSOPRAZOLE. [Concomitant]
     Active Substance: LANSOPRAZOLE
     Indication: PRODUCT USED FOR UNKNOWN INDICATION
     Dosage: 15 MG, UNK
  7. ASPIRIN. [Concomitant]
     Active Substance: ASPIRIN
     Indication: ESSENTIAL THROMBOCYTHAEMIA
     Dosage: 100 MG, UNK
  8. CONSTAN [Concomitant]
     Active Substance: ALPRAZOLAM
     Indication: PRODUCT USED FOR UNKNOWN INDICATION
     Dosage: 1.2 MG, UNK
  9. VIDAZA [Concomitant]
     Active Substance: AZACITIDINE
     Dosage: UNK
     Dates: start: 20150707
  10. MAGLAX [Concomitant]
     Active Substance: MAGNESIUM OXIDE
     Indication: PRODUCT USED FOR UNKNOWN INDICATION
     Dosage: 750 MG, UNK

REACTIONS (7)
  - Pyrexia [Unknown]
  - Pulmonary congestion [Unknown]
  - Alveolar lung disease [Unknown]
  - Ventilation perfusion mismatch [Unknown]
  - Dyspnoea exertional [Recovering/Resolving]
  - Left ventricular failure [Unknown]
  - Hypoxia [Unknown]

NARRATIVE: CASE EVENT DATE: 20150627
